FAERS Safety Report 10176624 (Version 2)
Quarter: 2014Q2

REPORT INFORMATION
  Report Type: Spontaneous
  Country: PT (occurrence: PT)
  Receive Date: 20140516
  Receipt Date: 20140523
  Transmission Date: 20141212
  Serious: Yes (Other)
  Sender: FDA-Public Use
  Company Number: PT-SA-2014SA058135

PATIENT
  Age: 82 Year
  Sex: Female

DRUGS (7)
  1. COAPROVEL [Suspect]
     Indication: HYPERTENSION
     Route: 048
  2. COAPROVEL [Suspect]
     Indication: HYPERTENSION
     Route: 048
  3. APROVEL [Suspect]
     Indication: HYPERTENSION
     Route: 048
     Dates: start: 201404
  4. GASEC [Concomitant]
     Indication: HIATUS HERNIA
     Route: 048
  5. THYRAX [Concomitant]
     Indication: HYPOTHYROIDISM
     Route: 048
  6. TRANXENE [Concomitant]
     Indication: NERVOUSNESS
     Route: 048
  7. ALL OTHER THERAPEUTIC PRODUCTS [Concomitant]
     Indication: NERVOUSNESS
     Route: 048

REACTIONS (4)
  - Glaucoma [Not Recovered/Not Resolved]
  - Visual impairment [Not Recovered/Not Resolved]
  - Visual acuity reduced [Not Recovered/Not Resolved]
  - Cataract operation [Unknown]
